FAERS Safety Report 12861488 (Version 1)
Quarter: 2016Q4

REPORT INFORMATION
  Report Type: Spontaneous
  Country: CH (occurrence: CH)
  Receive Date: 20161019
  Receipt Date: 20161019
  Transmission Date: 20170207
  Serious: Yes (Other)
  Sender: FDA-Public Use
  Company Number: CH-ASTRAZENECA-2016SF08403

PATIENT
  Age: 18112 Day
  Sex: Male

DRUGS (11)
  1. SUBUTEX [Interacting]
     Active Substance: BUPRENORPHINE HYDROCHLORIDE
     Route: 065
  2. TRITTICO [Interacting]
     Active Substance: TRAZODONE HYDROCHLORIDE
     Route: 065
  3. BENZODIAZEPINE DERIVATIVES [Interacting]
     Active Substance: BENZODIAZEPINE
     Route: 040
     Dates: end: 20160921
  4. IMOVANE [Interacting]
     Active Substance: ZOPICLONE
     Route: 065
     Dates: start: 2008
  5. ACIDUM FOLICUM [Concomitant]
     Active Substance: FOLIC ACID
  6. KLACID [Interacting]
     Active Substance: CLARITHROMYCIN
     Route: 048
     Dates: start: 20160921, end: 20160922
  7. METOJECT [Concomitant]
     Active Substance: METHOTREXATE SODIUM
     Route: 058
  8. SEROQUEL [Suspect]
     Active Substance: QUETIAPINE FUMARATE
     Route: 048
  9. SURMONTIL [Concomitant]
     Active Substance: TRIMIPRAMINE MALEATE
  10. ROCEPHIN [Concomitant]
     Active Substance: CEFTRIAXONE SODIUM
     Route: 042
     Dates: start: 20160921, end: 20160922
  11. LAMICTAL [Concomitant]
     Active Substance: LAMOTRIGINE
     Dosage: LAMICTAL 25 MG 1-0-0-0, LAMICTAL 50 MG 0-0-0-1

REACTIONS (11)
  - Drug interaction [Recovered/Resolved]
  - Thrombophlebitis [Unknown]
  - Oedema peripheral [Unknown]
  - Cholestasis [Unknown]
  - Inflammation [Unknown]
  - Deep vein thrombosis [Unknown]
  - Septic embolus [Unknown]
  - General physical health deterioration [Unknown]
  - Lymphadenopathy [Unknown]
  - Urinary retention [Unknown]
  - Somnolence [Recovered/Resolved]

NARRATIVE: CASE EVENT DATE: 20160922
